FAERS Safety Report 5994122-1 (Version None)
Quarter: 2008Q4

REPORT INFORMATION
  Report Type: 
  Country: None (occurrence: None)
  Receive Date: 20081212
  Receipt Date: 20081203
  Transmission Date: 20090506
  Serious: Yes (Other)
  Sender: FDA-Public Use
  Company Number: US-GENENTECH-273011

PATIENT
  Sex: Male

DRUGS (7)
  1. BLINDED BEVACIZUMAB [Suspect]
     Indication: BREAST CANCER
     Dosage: 10 MG/M2, UNK
     Route: 042
     Dates: start: 20080124
  2. CYCLOPHOSPHAMIDE [Suspect]
     Indication: BREAST CANCER
     Dosage: 10 MG/M2, UNK
     Route: 042
     Dates: start: 20080124
  3. DOXORUBICIN HCL [Suspect]
     Indication: BREAST CANCER
     Dosage: 10 MG/M2, UNK
     Route: 042
     Dates: start: 20080124
  4. PACLITAXEL [Suspect]
     Indication: BREAST CANCER
     Dosage: 10 MG/M2, UNK
     Route: 042
     Dates: start: 20080124
  5. DOXORUBICIN HCL [Suspect]
     Indication: BREAST CANCER
     Dosage: 60 MG/M2, UNK
     Route: 042
     Dates: start: 20080124
  6. CYCLOPHOSPHAMIDE [Suspect]
     Indication: BREAST CANCER
     Dosage: 600 MG/M2, UNK
     Route: 042
     Dates: start: 20080124
  7. PACLITAXEL [Suspect]
     Indication: BREAST CANCER
     Dosage: 80 MG/M2, UNK
     Route: 042
     Dates: start: 20080124

REACTIONS (1)
  - VISION BLURRED [None]
